APPROVED DRUG PRODUCT: SODIUM PHOSPHATE P 32
Active Ingredient: SODIUM PHOSPHATE P-32
Strength: 1.5mCi/VIAL
Dosage Form/Route: SOLUTION;INJECTION, ORAL
Application: N011777 | Product #002
Applicant: MALLINCKRODT MEDICAL INC
Approved: Approved Prior to Jan 1, 1982 | RLD: No | RS: No | Type: DISCN